FAERS Safety Report 9825925 (Version 1)
Quarter: 2014Q1

REPORT INFORMATION
  Report Type: Spontaneous
  Country: US (occurrence: US)
  Receive Date: 20140117
  Receipt Date: 20140117
  Transmission Date: 20141002
  Serious: No
  Sender: FDA-Public Use
  Company Number: US-BAYER-2014-008297

PATIENT
  Age: 59 Year
  Sex: Male
  Weight: 151.93 kg

DRUGS (4)
  1. ALEVE TABLET [Suspect]
     Indication: ARTHRITIS
     Dosage: 1 DF, TID
     Route: 048
     Dates: start: 20140102
  2. IRON [Concomitant]
  3. VITAMIN D [Concomitant]
  4. ASPIRIN [Concomitant]

REACTIONS (2)
  - Blood pressure increased [None]
  - Incorrect drug administration duration [None]
